FAERS Safety Report 6800726-6 (Version None)
Quarter: 2010Q2

REPORT INFORMATION
  Report Type: 
  Country: None (occurrence: None)
  Receive Date: 20100629
  Receipt Date: 20100617
  Transmission Date: 20101027
  Serious: Yes (Congenital Anomaly)
  Sender: FDA-Public Use
  Company Number: IT-JNJFOC-20100605407

PATIENT
  Sex: Female
  Weight: 2.36 kg

DRUGS (7)
  1. TOPIRAMATE [Suspect]
     Indication: DRUG EXPOSURE DURING PREGNANCY
     Route: 015
  2. OXCARBAZEPINE [Suspect]
     Indication: DRUG EXPOSURE DURING PREGNANCY
     Route: 015
  3. PHENOBARBITAL [Suspect]
     Indication: DRUG EXPOSURE DURING PREGNANCY
     Route: 015
  4. LEVETIRACETAM [Suspect]
     Indication: DRUG EXPOSURE DURING PREGNANCY
     Route: 015
  5. FOLIC ACID [Suspect]
     Indication: DRUG EXPOSURE DURING PREGNANCY
     Route: 015
  6. A MULTIVITAMIN [Suspect]
     Indication: DRUG EXPOSURE DURING PREGNANCY
     Route: 015
  7. PROGESTERONE [Suspect]
     Indication: DRUG USE FOR UNKNOWN INDICATION
     Route: 015

REACTIONS (1)
  - HAEMANGIOMA [None]
